FAERS Safety Report 16109357 (Version 1)
Quarter: 2019Q1

REPORT INFORMATION
  Report Type: Report from Study
  Country: ES (occurrence: ES)
  Receive Date: 20190324
  Receipt Date: 20190324
  Transmission Date: 20190418
  Serious: Yes (Hospitalization)
  Sender: FDA-Public Use
  Company Number: ES-ACCORD-115019

PATIENT
  Age: 91 Year
  Sex: Female

DRUGS (12)
  1. FORADIL [Concomitant]
     Active Substance: FORMOTEROL FUMARATE
     Indication: CHRONIC OBSTRUCTIVE PULMONARY DISEASE
     Dosage: STRENGTH 12MCG,POWDER FOR INHALATION (HARD CAPSULE), 60 INHALATION CAPSULES
     Route: 055
     Dates: start: 2012
  2. PROPRANOLOL [Concomitant]
     Active Substance: PROPRANOLOL HYDROCHLORIDE
     Indication: HYPERTENSION
     Dosage: 1-0-1,FREQUENCY UNIT: 1?DAY
     Route: 048
     Dates: start: 20141204
  3. MIFLONIDE [Concomitant]
     Active Substance: BUDESONIDE
     Indication: CHRONIC OBSTRUCTIVE PULMONARY DISEASE
     Dosage: STRENGTH 400 MCG,POWDER FOR INHALATION (HARD CAPSULE),1 INHALER+120 CAPSULES,1-0-1,FREQUENCY UNIT: 2
     Route: 055
     Dates: start: 201412
  4. ALLOPURINOL. [Suspect]
     Active Substance: ALLOPURINOL
     Indication: HYPERURICAEMIA
     Dosage: 1/2 CP / 24 H X 1 MONTH FOLLOWED BY 1 CP DAY
     Route: 048
     Dates: start: 20150527, end: 20150628
  5. OMEPRAZOLE. [Concomitant]
     Active Substance: OMEPRAZOLE
     Indication: PROPHYLAXIS
     Dosage: 1 CP,FREQUENCY UNIT: 1 DAY
     Route: 048
     Dates: start: 201409
  6. ADIRO [Concomitant]
     Active Substance: ASPIRIN
     Dosage: STRENGTH 100 MG,30 TABLETS,1 CP,FREQUENCY UNIT: 1?DAY
     Route: 048
     Dates: start: 2009
  7. PARACETAMOL [Concomitant]
     Active Substance: ACETAMINOPHEN
     Indication: PROPHYLAXIS
     Dosage: STRENGTY 1 G,ON DEMAND,FREQUENCY UNIT: 0 WHEN NECESSARY
     Route: 048
     Dates: start: 2012
  8. TRANKIMAZIN [Concomitant]
     Active Substance: ALPRAZOLAM
     Indication: INSOMNIA
     Dosage: STRENGTH 0.50 MG,30 TABLETS,1-0-1,DOSAGE UNIT FREQUENCY: 1 MG-MILLIGRAMS
     Route: 048
     Dates: start: 201309
  9. LUMIGAN [Concomitant]
     Active Substance: BIMATOPROST
     Indication: GLAUCOMA
     Dosage: STRENGTH 0.3MG/ML,EYE DROPS IN SOLUTION IN SINGLE-DOSE CONTAINER, 30?SINGLE-DOSE CONTAINERS OF0.4ML
     Route: 047
     Dates: start: 2013
  10. RIVOTRIL [Concomitant]
     Active Substance: CLONAZEPAM
     Indication: INSOMNIA
     Dosage: STRENGTH 0.5 MG,60 TABLETS,0-0-1,FREQUENCY UNIT: 1 DAY
     Route: 048
     Dates: start: 201309
  11. NOLOTIL [Concomitant]
     Indication: PAIN
     Dosage: STRENGTH 575 MG,20 CAPSULES,ON DEMAND,FREQUENCY UNIT: 0 WHEN NECESSARY
     Route: 048
     Dates: start: 201406
  12. FUROSEMIDE. [Concomitant]
     Active Substance: FUROSEMIDE
     Indication: HYPERTENSION
     Dosage: 1-0-0,FREQUENCY UNIT:?1 DAY
     Route: 048
     Dates: start: 20150610

REACTIONS (1)
  - Drug reaction with eosinophilia and systemic symptoms [Recovered/Resolved]

NARRATIVE: CASE EVENT DATE: 20150627
